FAERS Safety Report 12386428 (Version 1)
Quarter: 2016Q2

REPORT INFORMATION
  Report Type: Spontaneous
  Country: JP (occurrence: JP)
  Receive Date: 20160519
  Receipt Date: 20160519
  Transmission Date: 20160815
  Serious: Yes (Other)
  Sender: FDA-Public Use
  Company Number: JP-JNJFOC-20160516523

PATIENT

DRUGS (1)
  1. TRAMAL OD [Suspect]
     Active Substance: TRAMADOL
     Indication: CANCER PAIN
     Route: 048

REACTIONS (1)
  - Ileus [Unknown]
